FAERS Safety Report 25284890 (Version 1)
Quarter: 2025Q2

REPORT INFORMATION
  Report Type: Report from Study
  Country: CA (occurrence: CA)
  Receive Date: 20250508
  Receipt Date: 20250508
  Transmission Date: 20250717
  Serious: Yes (Other)
  Sender: ABBVIE
  Company Number: CA-ABBVIE-6266855

PATIENT
  Age: 38 Year
  Sex: Male

DRUGS (1)
  1. SKYRIZI [Suspect]
     Active Substance: RISANKIZUMAB-RZAA
     Indication: Crohn^s disease
     Route: 058

REACTIONS (8)
  - Dialysis [Unknown]
  - Acne [Recovering/Resolving]
  - Constipation [Unknown]
  - Erythema [Unknown]
  - Procedural pain [Unknown]
  - Injection site pain [Unknown]
  - Mass [Unknown]
  - Cellulitis [Unknown]

NARRATIVE: CASE EVENT DATE: 20250101
